FAERS Safety Report 4854400-6 (Version None)
Quarter: 2005Q4

REPORT INFORMATION
  Report Type: 
  Country: None (occurrence: None)
  Receive Date: 20051213
  Receipt Date: 20051202
  Transmission Date: 20060501
  Serious: Yes (Other)
  Sender: FDA-Public Use
  Company Number: CIP05002863

PATIENT
  Age: 71 Year
  Sex: Female

DRUGS (2)
  1. RISEDRONATE SODIUM [Suspect]
     Dosage: ORAL
     Route: 048
     Dates: start: 20040301, end: 20040301
  2. DRUG NOS [Suspect]

REACTIONS (1)
  - HEPATOCELLULAR DAMAGE [None]
